FAERS Safety Report 4792488-1 (Version None)
Quarter: 2005Q4

REPORT INFORMATION
  Report Type: 
  Country: None (occurrence: None)
  Receive Date: 20051010
  Receipt Date: 20050930
  Transmission Date: 20060501
  Serious: Yes (Other)
  Sender: FDA-Public Use
  Company Number: FR-JNJFOC-20051000724

PATIENT
  Age: 84 Year
  Sex: Female

DRUGS (1)
  1. HALDOL [Suspect]
     Indication: DRUG USE FOR UNKNOWN INDICATION
     Dosage: 0.5MG/ML SOLUTION
     Route: 048

REACTIONS (1)
  - VENTRICULAR EXTRASYSTOLES [None]
